FAERS Safety Report 25977026 (Version 2)
Quarter: 2025Q4

REPORT INFORMATION
  Report Type: Spontaneous
  Country: US (occurrence: US)
  Receive Date: 20251030
  Receipt Date: 20251113
  Transmission Date: 20260117
  Serious: Yes (Hospitalization)
  Sender: TEVA
  Company Number: US-TEVA-VS-3384693

PATIENT
  Age: 24 Year
  Sex: Female

DRUGS (4)
  1. FREMANEZUMAB [Suspect]
     Active Substance: FREMANEZUMAB
     Indication: Migraine
     Route: 058
  2. PREDNISONE [Suspect]
     Active Substance: PREDNISONE
     Indication: Tubulointerstitial nephritis
     Dosage: TAPER DOSE
     Route: 048
  3. DEVICE [Suspect]
     Active Substance: DEVICE
     Route: 065
  4. DEVICE [Suspect]
     Active Substance: DEVICE
     Route: 065

REACTIONS (7)
  - Tubulointerstitial nephritis [Recovered/Resolved]
  - Rebound effect [Unknown]
  - Hepatic enzyme increased [Recovering/Resolving]
  - Blood creatinine increased [Recovered/Resolved]
  - Gastrointestinal disorder [Unknown]
  - Vomiting [Unknown]
  - Nausea [Unknown]
